FAERS Safety Report 16061097 (Version 1)
Quarter: 2019Q1

REPORT INFORMATION
  Report Type: Other
  Country: CA (occurrence: CA)
  Receive Date: 20190312
  Receipt Date: 20190312
  Transmission Date: 20190418
  Serious: Yes (Other)
  Sender: FDA-Public Use
  Company Number: CA-APOTEX-2019AP009025

PATIENT
  Age: 59 Year
  Sex: Male

DRUGS (12)
  1. ZOPICLONE [Suspect]
     Active Substance: ZOPICLONE
     Indication: PRODUCT USED FOR UNKNOWN INDICATION
     Route: 065
  2. SANDOSTATIN [Suspect]
     Active Substance: OCTREOTIDE ACETATE
     Indication: CARCINOID TUMOUR
     Dosage: 20 MG, ONCE EVERY 4 WEEKS
     Route: 030
  3. SANDOSTATIN [Suspect]
     Active Substance: OCTREOTIDE ACETATE
     Dosage: 20 MG, Q.M.T.
     Route: 030
  4. LUTETIUM (LU 177) [Concomitant]
     Active Substance: LUTETIUM LU-177
     Indication: PRODUCT USED FOR UNKNOWN INDICATION
     Route: 065
  5. TRAJENTA [Concomitant]
     Active Substance: LINAGLIPTIN
     Indication: PRODUCT USED FOR UNKNOWN INDICATION
     Dosage: 5 MG, BID
     Route: 065
  6. QUINAPRIL. [Concomitant]
     Active Substance: QUINAPRIL
     Indication: PRODUCT USED FOR UNKNOWN INDICATION
     Route: 065
  7. METFORMIN [Suspect]
     Active Substance: METFORMIN HYDROCHLORIDE
     Indication: PRODUCT USED FOR UNKNOWN INDICATION
     Dosage: 2 DF, BID
     Route: 065
  8. ROSUVASTATIN. [Suspect]
     Active Substance: ROSUVASTATIN
     Indication: PRODUCT USED FOR UNKNOWN INDICATION
     Dosage: 5 MG, UNK
     Route: 065
  9. AMLODIPINE [Suspect]
     Active Substance: AMLODIPINE BESYLATE
     Indication: PRODUCT USED FOR UNKNOWN INDICATION
     Route: 065
  10. GLYBURIDE. [Concomitant]
     Active Substance: GLYBURIDE
     Indication: PRODUCT USED FOR UNKNOWN INDICATION
     Dosage: 5 MG, BID
     Route: 065
  11. HYDROCHLOROTHIAZIDE. [Concomitant]
     Active Substance: HYDROCHLOROTHIAZIDE
     Indication: PRODUCT USED FOR UNKNOWN INDICATION
     Dosage: 25 MG, QD
     Route: 065
  12. IMODIUM [Suspect]
     Active Substance: LOPERAMIDE HYDROCHLORIDE
     Indication: PRODUCT USED FOR UNKNOWN INDICATION
     Route: 065

REACTIONS (24)
  - 5-hydroxyindolacetic acid in urine increased [Recovering/Resolving]
  - Red blood cell count decreased [Recovering/Resolving]
  - Haemoglobin decreased [Recovering/Resolving]
  - Nausea [Recovering/Resolving]
  - Blood pressure systolic increased [Recovering/Resolving]
  - Platelet count decreased [Recovering/Resolving]
  - Syncope [Recovering/Resolving]
  - Vomiting [Recovering/Resolving]
  - Hepatic neoplasm [Recovering/Resolving]
  - Inappropriate schedule of product administration [Recovering/Resolving]
  - Low density lipoprotein decreased [Recovering/Resolving]
  - Neoplasm [Recovering/Resolving]
  - Blood glucose increased [Recovering/Resolving]
  - Blood potassium decreased [Recovering/Resolving]
  - Glycosylated haemoglobin increased [Recovering/Resolving]
  - Urticaria [Recovering/Resolving]
  - Arteriosclerosis coronary artery [Recovering/Resolving]
  - Blood mercury abnormal [Recovering/Resolving]
  - Aspartate aminotransferase increased [Recovering/Resolving]
  - Gamma-glutamyltransferase increased [Recovering/Resolving]
  - Expired product administered [Recovering/Resolving]
  - Haematocrit decreased [Recovering/Resolving]
  - Pruritus [Recovering/Resolving]
  - Diarrhoea [Recovering/Resolving]
